FAERS Safety Report 9102793 (Version 1)
Quarter: 2013Q1

REPORT INFORMATION
  Report Type: Spontaneous
  Country: BR (occurrence: BR)
  Receive Date: 20130219
  Receipt Date: 20130219
  Transmission Date: 20140127
  Serious: Yes (Other)
  Sender: FDA-Public Use
  Company Number: BR-JNJFOC-20130204766

PATIENT
  Age: 71 Year
  Sex: Female
  Weight: 94 kg

DRUGS (6)
  1. TYLEX [Suspect]
     Indication: BACK PAIN
     Route: 048
     Dates: start: 20130118, end: 20130118
  2. METFORMIN [Concomitant]
     Indication: DIABETES MELLITUS
     Route: 065
     Dates: start: 2010, end: 201210
  3. ARA2 [Concomitant]
     Indication: HYPERTENSION
     Route: 065
     Dates: start: 2011
  4. INSULIN [Concomitant]
     Indication: DIABETES MELLITUS
     Route: 065
     Dates: start: 201210
  5. SINVASCOR [Concomitant]
     Indication: BLOOD CHOLESTEROL
     Route: 065
  6. GLIBENCLAMIDE [Concomitant]
     Indication: DIABETES MELLITUS
     Route: 065
     Dates: start: 201210

REACTIONS (4)
  - Feeling abnormal [Recovered/Resolved]
  - Vertigo [Recovered/Resolved]
  - Lethargy [Recovered/Resolved]
  - Blood pressure decreased [Recovered/Resolved]
